FAERS Safety Report 17625405 (Version 2)
Quarter: 2020Q3

REPORT INFORMATION
  Report Type: Spontaneous
  Country: US (occurrence: US)
  Receive Date: 20200404
  Receipt Date: 20200728
  Transmission Date: 20201102
  Serious: No
  Sender: FDA-Public Use
  Company Number: US-009507513-2004USA000933

PATIENT
  Age: 18 Year
  Sex: Female

DRUGS (1)
  1. NEXPLANON [Suspect]
     Active Substance: ETONOGESTREL
     Indication: CONTRACEPTION
     Dosage: 1 IMPLANT (68 MG), FREQUENCY REPORTED AS ONCE
     Route: 059
     Dates: start: 201809, end: 20191031

REACTIONS (2)
  - Depression [Unknown]
  - Mood swings [Unknown]

NARRATIVE: CASE EVENT DATE: 201809
